FAERS Safety Report 16064518 (Version 1)
Quarter: 2019Q1

REPORT INFORMATION
  Report Type: Other
  Country: IR (occurrence: IR)
  Receive Date: 20190312
  Receipt Date: 20190312
  Transmission Date: 20190418
  Serious: Yes (Hospitalization)
  Sender: FDA-Public Use
  Company Number: IR-CUMBERLAND PHARMACEUTICALS INC.-2063899

PATIENT
  Age: 58 Year
  Sex: Male

DRUGS (1)
  1. KRISTALOSE [Suspect]
     Active Substance: LACTULOSE
     Indication: CONSTIPATION

REACTIONS (1)
  - Flat affect [Recovered/Resolved]
